FAERS Safety Report 14066590 (Version 1)
Quarter: 2017Q4

REPORT INFORMATION
  Report Type: Spontaneous
  Country: US (occurrence: US)
  Receive Date: 20171006
  Receipt Date: 20171006
  Transmission Date: 20180321
  Serious: No
  Sender: FDA-Public Use
  Company Number: None

PATIENT
  Age: 66 Year
  Sex: Female
  Weight: 46.2 kg

DRUGS (2)
  1. DECADRON [Concomitant]
     Active Substance: DEXAMETHASONE
  2. EMEND [Suspect]
     Active Substance: APREPITANT
     Indication: NAUSEA
     Dosage: ?          OTHER FREQUENCY:EVERY WEEK;?

REACTIONS (4)
  - Flushing [None]
  - Dyspnoea [None]
  - Cough [None]
  - Palpitations [None]

NARRATIVE: CASE EVENT DATE: 20170920
